FAERS Safety Report 6050666-8 (Version None)
Quarter: 2009Q1

REPORT INFORMATION
  Report Type: 
  Country: None (occurrence: None)
  Receive Date: 20090126
  Receipt Date: 20090113
  Transmission Date: 20090719
  Serious: Yes (Hospitalization)
  Sender: FDA-Public Use
  Company Number: TR-ELI_LILLY_AND_COMPANY-TR200901003964

PATIENT
  Weight: 3.8 kg

DRUGS (6)
  1. HUMULIN R [Suspect]
     Indication: GESTATIONAL DIABETES
     Dosage: 18 IU, EACH MORNING
     Route: 064
     Dates: start: 20080117, end: 20080523
  2. HUMULIN R [Suspect]
     Dosage: 12 IU, NOON
     Route: 064
     Dates: start: 20080117, end: 20080523
  3. HUMULIN R [Suspect]
     Dosage: 10 IU, EACH EVENING
     Route: 064
     Dates: start: 20080117, end: 20080523
  4. HUMULIN N [Suspect]
     Indication: GESTATIONAL DIABETES
     Dosage: 12 IU, EACH EVENING
     Route: 064
     Dates: start: 20080117, end: 20080523
  5. MULTI-VITAMIN [Concomitant]
     Route: 064
  6. IRON [Concomitant]
     Route: 064

REACTIONS (2)
  - DRUG EXPOSURE DURING PREGNANCY [None]
  - PREMATURE BABY [None]
